FAERS Safety Report 6299620-1 (Version None)
Quarter: 2009Q3

REPORT INFORMATION
  Report Type: 
  Country: None (occurrence: None)
  Receive Date: 20090806
  Receipt Date: 20090727
  Transmission Date: 20100115
  Serious: Yes (Death, Other)
  Sender: FDA-Public Use
  Company Number: NSADSS2002023239

PATIENT
  Sex: Male

DRUGS (9)
  1. REMICADE [Suspect]
     Route: 041
     Dates: start: 20011015, end: 20020214
  2. REMICADE [Suspect]
     Route: 041
     Dates: start: 20011015, end: 20020214
  3. REMICADE [Suspect]
     Route: 041
     Dates: start: 20011015, end: 20020214
  4. REMICADE [Suspect]
     Indication: RHEUMATOID ARTHRITIS
     Route: 041
     Dates: start: 20011015, end: 20020214
  5. METHOTREXATE [Concomitant]
     Indication: RHEUMATOID ARTHRITIS
     Dates: start: 20010901
  6. EUGLUCON [Concomitant]
     Indication: DIABETES MELLITUS
  7. FROBEN [Concomitant]
  8. STEROID, NOS [Concomitant]
  9. ACFOL [Concomitant]

REACTIONS (4)
  - NASOPHARYNGITIS [None]
  - PROTEINURIA [None]
  - PULMONARY TUBERCULOSIS [None]
  - RENAL FAILURE [None]
